FAERS Safety Report 6726781-X (Version None)
Quarter: 2010Q2

REPORT INFORMATION
  Report Type: 
  Country: None (occurrence: None)
  Receive Date: 20100516
  Receipt Date: 20100504
  Transmission Date: 20101027
  Serious: Yes (Other)
  Sender: FDA-Public Use
  Company Number: SE-JNJFOC-20100502218

PATIENT
  Sex: Female

DRUGS (4)
  1. IPREN [Suspect]
     Indication: BACK PAIN
     Route: 048
  2. IPREN [Suspect]
     Route: 048
  3. ALVEDON [Suspect]
     Indication: BACK PAIN
  4. CERAZETTE [Suspect]
     Indication: DRUG USE FOR UNKNOWN INDICATION
     Route: 048

REACTIONS (2)
  - HEPATIC ENZYME INCREASED [None]
  - HYPOAESTHESIA [None]
